FAERS Safety Report 9412454 (Version 1)
Quarter: 2013Q3

REPORT INFORMATION
  Report Type: Spontaneous
  Country: None (occurrence: None)
  Receive Date: 20130708
  Receipt Date: 20130708
  Transmission Date: 20140515
  Serious: Yes (Hospitalization)
  Sender: FDA-Public Use
  Company Number: 09-AUR-09791

PATIENT
  Age: 32 Year
  Sex: Male

DRUGS (5)
  1. ZIDOVUDINE [Suspect]
  2. LAMIVUDINE [Suspect]
  3. LOPINAVIR/RITONAVIR [Suspect]
  4. SULFADIAZINE [Suspect]
  5. PYRIMETHAMINE [Suspect]

REACTIONS (8)
  - Progressive multifocal leukoencephalopathy [None]
  - Eyelid ptosis [None]
  - Oral candidiasis [None]
  - Aspergilloma [None]
  - Pancytopenia [None]
  - Abnormal behaviour [None]
  - Hyperaemia [None]
  - Purulent discharge [None]
